FAERS Safety Report 9258016 (Version 1)
Quarter: 2013Q1

REPORT INFORMATION
  Report Type: Spontaneous
  Country: US (occurrence: None)
  Receive Date: 20121212
  Receipt Date: 20121212
  Transmission Date: 20140127
  Serious: No
  Sender: FDA-Public Use
  Company Number: 1208USA007651

PATIENT
  Age: 60 Year
  Sex: Male

DRUGS (1)
  1. VICTRELIS [Suspect]
     Route: 048
     Dates: start: 201206

REACTIONS (3)
  - Weight decreased [None]
  - Anaemia [None]
  - Decreased appetite [None]
